FAERS Safety Report 4974221-3 (Version None)
Quarter: 2006Q2

REPORT INFORMATION
  Report Type: 
  Country: None (occurrence: None)
  Receive Date: 20060417
  Receipt Date: 20051020
  Transmission Date: 20061013
  Serious: Yes (Hospitalization)
  Sender: FDA-Public Use
  Company Number: US-MERCK-0510USA08465

PATIENT
  Age: 43 Year
  Sex: Male
  Weight: 100 kg

DRUGS (7)
  1. VIOXX [Suspect]
     Indication: ARTHRALGIA
     Route: 048
     Dates: start: 19990101, end: 20030401
  2. VIOXX [Suspect]
     Route: 048
     Dates: start: 19990101, end: 20030401
  3. VIOXX [Suspect]
     Indication: BACK PAIN
     Route: 048
     Dates: start: 19990101, end: 20030401
  4. VIOXX [Suspect]
     Route: 048
     Dates: start: 19990101, end: 20030401
  5. FLOVENT [Concomitant]
     Indication: ASTHMA
     Route: 065
  6. ADVAIR DISKUS 100/50 [Concomitant]
     Indication: ASTHMA
     Route: 065
  7. ASPIRIN [Concomitant]
     Route: 065

REACTIONS (29)
  - ARTHROPATHY [None]
  - BACK PAIN [None]
  - BLOOD CHOLESTEROL INCREASED [None]
  - BLOOD TRIGLYCERIDES INCREASED [None]
  - BRONCHIAL HYPERACTIVITY [None]
  - CARDIOVASCULAR DISORDER [None]
  - CEREBROVASCULAR ACCIDENT [None]
  - CERVICAL SPINAL STENOSIS [None]
  - CHEST DISCOMFORT [None]
  - CHEST PAIN [None]
  - CHONDROSIS [None]
  - DEPRESSION [None]
  - DIABETES MELLITUS [None]
  - GALLBLADDER DISORDER [None]
  - GASTRIC ULCER [None]
  - JOINT DISLOCATION [None]
  - MALAISE [None]
  - NECK PAIN [None]
  - PAIN [None]
  - PATELLA FRACTURE [None]
  - PERIARTHRITIS [None]
  - PRESCRIBED OVERDOSE [None]
  - PRIAPISM [None]
  - ROTATOR CUFF SYNDROME [None]
  - SEXUAL DYSFUNCTION [None]
  - SINUS ARRHYTHMIA [None]
  - SPINAL COLUMN STENOSIS [None]
  - SPINAL OSTEOARTHRITIS [None]
  - SYNCOPE [None]
